FAERS Safety Report 7477643-4 (Version None)
Quarter: 2011Q2

REPORT INFORMATION
  Report Type: 
  Country: None (occurrence: None)
  Receive Date: 20110513
  Receipt Date: 20110502
  Transmission Date: 20111010
  Serious: Yes (Other)
  Sender: FDA-Public Use
  Company Number: US-BAYER-2011-037591

PATIENT
  Sex: Female

DRUGS (1)
  1. CIPRO [Suspect]

REACTIONS (8)
  - URINARY TRACT INFECTION [None]
  - BLINDNESS [None]
  - DEPRESSION [None]
  - NEPHROLITHIASIS [None]
  - ATTENTION DEFICIT/HYPERACTIVITY DISORDER [None]
  - HYPERTENSION [None]
  - GASTROOESOPHAGEAL REFLUX DISEASE [None]
  - RENAL FAILURE CHRONIC [None]
